FAERS Safety Report 13201064 (Version 2)
Quarter: 2017Q2

REPORT INFORMATION
  Report Type: Spontaneous
  Country: FR (occurrence: FR)
  Receive Date: 20170209
  Receipt Date: 20170523
  Transmission Date: 20170830
  Serious: Yes (Life-Threatening)
  Sender: FDA-Public Use
  Company Number: FR-ROCHE-1891195

PATIENT
  Age: 56 Year
  Sex: Male

DRUGS (12)
  1. CORTANCYL [Concomitant]
     Active Substance: PREDNISONE
     Route: 048
  2. IMETH [Concomitant]
     Active Substance: METHOTREXATE SODIUM
     Route: 048
     Dates: start: 201510
  3. ROACTEMRA [Suspect]
     Active Substance: TOCILIZUMAB
     Indication: RHEUMATOID ARTHRITIS
     Dosage: SINGLE INTAKE?20MG/ML CONCENTRATE FOR SOLUTION FOR INFUSION
     Route: 041
     Dates: start: 20170117
  4. IXPRIM [Concomitant]
     Active Substance: ACETAMINOPHEN\TRAMADOL HYDROCHLORIDE
     Dosage: : 2 TABLETS MORNING, MIDDAY AND EVENING
     Route: 048
  5. OMEPRAZOLE. [Concomitant]
     Active Substance: OMEPRAZOLE
     Route: 048
  6. RYTHMOL [Suspect]
     Active Substance: PROPAFENONE HYDROCHLORIDE
     Indication: TACHYCARDIA
     Route: 048
     Dates: start: 201701
  7. FOLIC ACID. [Concomitant]
     Active Substance: FOLIC ACID
     Dosage: IN THE EVENING
     Route: 048
     Dates: start: 201510
  8. IZALGI [Concomitant]
     Active Substance: ACETAMINOPHEN\OPIUM
     Indication: PAIN
     Dosage: 500 MG/25MG?IN CASE OF PAIN
     Route: 048
  9. NABUCOX [Concomitant]
     Active Substance: NABUMETONE
     Dosage: 2 TABLETS MORNING AND EVENING
     Route: 048
  10. UVEDOSE [Concomitant]
     Active Substance: CHOLECALCIFEROL
     Dosage: 1 AMPOULE TO DRINK EVERY MONTH
     Route: 065
  11. ROACTEMRA [Suspect]
     Active Substance: TOCILIZUMAB
     Route: 041
     Dates: start: 201610
  12. RYTHMOL [Suspect]
     Active Substance: PROPAFENONE HYDROCHLORIDE
     Route: 048

REACTIONS (1)
  - Cardiogenic shock [Recovered/Resolved]

NARRATIVE: CASE EVENT DATE: 20170117
